FAERS Safety Report 10181819 (Version 4)
Quarter: 2014Q3

REPORT INFORMATION
  Report Type: Report from Study
  Country: JP (occurrence: JP)
  Receive Date: 20140519
  Receipt Date: 20140807
  Transmission Date: 20150326
  Serious: Yes (Other)
  Sender: FDA-Public Use
  Company Number: JP-009507513-1404JPN000460

PATIENT
  Age: 53 Year
  Sex: Female

DRUGS (88)
  1. NAVELBINE [Suspect]
     Active Substance: VINORELBINE TARTRATE
     Dosage: 18 MG, ONCE
     Route: 042
     Dates: start: 20131126, end: 20131126
  2. ALOXI [Concomitant]
     Active Substance: PALONOSETRON HYDROCHLORIDE
     Dosage: UNK
     Dates: start: 20130814, end: 20130814
  3. ALOXI [Concomitant]
     Active Substance: PALONOSETRON HYDROCHLORIDE
     Dosage: UNK
     Dates: start: 20131126, end: 20131126
  4. DECADRON (DEXAMETHASONE SODIUM PHOSPHATE) [Concomitant]
     Active Substance: DEXAMETHASONE SODIUM PHOSPHATE
     Dosage: UNK
     Dates: start: 20131030, end: 20131030
  5. DECADRON (DEXAMETHASONE SODIUM PHOSPHATE) [Concomitant]
     Active Substance: DEXAMETHASONE SODIUM PHOSPHATE
     Dosage: UNK
     Dates: start: 20131128, end: 20131128
  6. PRIMPERAN [Concomitant]
     Active Substance: METOCLOPRAMIDE HYDROCHLORIDE
     Dosage: UNK
     Dates: start: 20130817, end: 20130818
  7. PRIMPERAN [Concomitant]
     Active Substance: METOCLOPRAMIDE HYDROCHLORIDE
     Dosage: UNK
     Dates: start: 20130922, end: 20130922
  8. MAGNESIUM SULFATE [Concomitant]
     Active Substance: MAGNESIUM SULFATE
     Dosage: UNK
     Dates: start: 20130814, end: 20130814
  9. MANNITOL. [Concomitant]
     Active Substance: MANNITOL
     Dosage: UNK
     Dates: start: 20130814, end: 20130814
  10. MAGLAX (MAGNESIUM OXIDE) [Concomitant]
     Active Substance: MAGNESIUM OXIDE
     Dosage: UNK
     Dates: start: 20130818, end: 20130818
  11. MAGLAX (MAGNESIUM OXIDE) [Concomitant]
     Active Substance: MAGNESIUM OXIDE
     Dosage: UNK
     Dates: start: 20131126, end: 20131126
  12. POSTERISAN [Concomitant]
     Active Substance: LIDOCAINE
     Dosage: UNK, QD
     Dates: start: 20130920, end: 20130922
  13. CALONAL [Concomitant]
     Active Substance: ACETAMINOPHEN
     Dosage: UNK
     Dates: start: 20130922, end: 20130922
  14. ROCEPHIN [Concomitant]
     Active Substance: CEFTRIAXONE SODIUM
     Dosage: UNK
     Dates: start: 20130930, end: 20130930
  15. CISPLATIN. [Suspect]
     Active Substance: CISPLATIN
     Dosage: 70 MG, ONCE
     Route: 042
     Dates: start: 20131126, end: 20131126
  16. DECADRON (DEXAMETHASONE SODIUM PHOSPHATE) [Concomitant]
     Active Substance: DEXAMETHASONE SODIUM PHOSPHATE
     Dosage: UNK
     Dates: start: 20130815, end: 20130816
  17. DECADRON (DEXAMETHASONE SODIUM PHOSPHATE) [Concomitant]
     Active Substance: DEXAMETHASONE SODIUM PHOSPHATE
     Dosage: UNK
     Dates: start: 20131031, end: 20131031
  18. PRIMPERAN [Concomitant]
     Active Substance: METOCLOPRAMIDE HYDROCHLORIDE
     Dosage: UNK
     Dates: start: 20130919, end: 20130920
  19. PRIMPERAN [Concomitant]
     Active Substance: METOCLOPRAMIDE HYDROCHLORIDE
     Dosage: UNK
     Dates: start: 20131130, end: 20131130
  20. PRIMPERAN [Concomitant]
     Active Substance: METOCLOPRAMIDE HYDROCHLORIDE
     Dosage: UNK
     Dates: start: 20131102, end: 20131102
  21. MANNITOL. [Concomitant]
     Active Substance: MANNITOL
     Dosage: UNK
     Dates: start: 20131126, end: 20131126
  22. PANTOSIN [Concomitant]
     Active Substance: PANTETHINE
     Dosage: UNK
     Dates: start: 20131102, end: 20131102
  23. PANTOSIN [Concomitant]
     Active Substance: PANTETHINE
     Dosage: UNK
     Dates: start: 20131031, end: 20131031
  24. MAGLAX (MAGNESIUM OXIDE) [Concomitant]
     Active Substance: MAGNESIUM OXIDE
     Dosage: UNK
     Dates: start: 20130918, end: 20130918
  25. MAGLAX (MAGNESIUM OXIDE) [Concomitant]
     Active Substance: MAGNESIUM OXIDE
     Dosage: UNK
     Dates: start: 20130817, end: 20130817
  26. MAGLAX (MAGNESIUM OXIDE) [Concomitant]
     Active Substance: MAGNESIUM OXIDE
     Dosage: UNK
     Dates: start: 20131031, end: 20131031
  27. GRAN [Concomitant]
     Active Substance: FILGRASTIM
     Dosage: UNK
     Dates: start: 20131005, end: 20131006
  28. DECADRON (DEXAMETHASONE SODIUM PHOSPHATE) [Concomitant]
     Active Substance: DEXAMETHASONE SODIUM PHOSPHATE
     Dosage: UNK
     Dates: start: 20130814, end: 20130814
  29. PRIMPERAN [Concomitant]
     Active Substance: METOCLOPRAMIDE HYDROCHLORIDE
     Dosage: UNK
     Dates: start: 20131128, end: 20131128
  30. PRIMPERAN [Concomitant]
     Active Substance: METOCLOPRAMIDE HYDROCHLORIDE
     Dosage: UNK
     Dates: start: 20131101, end: 20131101
  31. PRIMPERAN [Concomitant]
     Active Substance: METOCLOPRAMIDE HYDROCHLORIDE
     Dosage: UNK
     Dates: start: 20131103, end: 20131103
  32. MANNITOL. [Concomitant]
     Active Substance: MANNITOL
     Dosage: UNK
     Dates: start: 20130918, end: 20130918
  33. MAGLAX (MAGNESIUM OXIDE) [Concomitant]
     Active Substance: MAGNESIUM OXIDE
     Dosage: UNK
     Dates: start: 20130921, end: 20130921
  34. POSTERISAN [Concomitant]
     Active Substance: LIDOCAINE
     Dosage: UNK, BID
     Dates: start: 20131127, end: 20131130
  35. MAGLAX (MAGNESIUM OXIDE) [Concomitant]
     Active Substance: MAGNESIUM OXIDE
     Dosage: UNK
     Dates: start: 20131103, end: 20131103
  36. FOSAPREPITANT DIMEGLUMINE [Suspect]
     Active Substance: FOSAPREPITANT DIMEGLUMINE
     Dosage: 150 MG, ONCE
     Route: 041
     Dates: start: 20131030, end: 20131030
  37. FOSAPREPITANT DIMEGLUMINE [Suspect]
     Active Substance: FOSAPREPITANT DIMEGLUMINE
     Dosage: 150 MG, ONCE
     Route: 041
     Dates: start: 20131126, end: 20131126
  38. DECADRON (DEXAMETHASONE SODIUM PHOSPHATE) [Concomitant]
     Active Substance: DEXAMETHASONE SODIUM PHOSPHATE
     Dosage: UNK
     Dates: start: 20131126, end: 20131127
  39. PRIMPERAN [Concomitant]
     Active Substance: METOCLOPRAMIDE HYDROCHLORIDE
     Dosage: UNK
     Dates: start: 20130815, end: 20130815
  40. PANTOSIN [Concomitant]
     Active Substance: PANTETHINE
     Dosage: UNK
     Dates: start: 20131126, end: 20131126
  41. MAXIPIME [Concomitant]
     Active Substance: CEFEPIME HYDROCHLORIDE
     Dosage: UNK
     Dates: start: 20130922, end: 20130922
  42. MAGLAX (MAGNESIUM OXIDE) [Concomitant]
     Active Substance: MAGNESIUM OXIDE
     Dosage: UNK
     Dates: start: 20130920, end: 20130920
  43. FOSAPREPITANT DIMEGLUMINE [Suspect]
     Active Substance: FOSAPREPITANT DIMEGLUMINE
     Indication: PROPHYLAXIS OF NAUSEA AND VOMITING
     Dosage: 150 MG, ONCE
     Route: 041
     Dates: start: 20130814, end: 20130814
  44. NAVELBINE [Suspect]
     Active Substance: VINORELBINE TARTRATE
     Dosage: 23 MG, ONCE
     Route: 042
     Dates: start: 20130918, end: 20130918
  45. CISPLATIN. [Suspect]
     Active Substance: CISPLATIN
     Indication: NON-SMALL CELL LUNG CANCER
     Dosage: 110 MG, ONCE
     Route: 042
     Dates: start: 20130814, end: 20130814
  46. CISPLATIN. [Suspect]
     Active Substance: CISPLATIN
     Dosage: 70 MG, ONCE
     Route: 042
     Dates: start: 20131030, end: 20131030
  47. ALOXI [Concomitant]
     Active Substance: PALONOSETRON HYDROCHLORIDE
     Dosage: UNK
     Dates: start: 20131030, end: 20131030
  48. MAGNESIUM SULFATE [Concomitant]
     Active Substance: MAGNESIUM SULFATE
     Dosage: UNK
     Dates: start: 20131126, end: 20131126
  49. PANTOSIN [Concomitant]
     Active Substance: PANTETHINE
     Dosage: UNK
     Dates: start: 20130918, end: 20130918
  50. MAGLAX (MAGNESIUM OXIDE) [Concomitant]
     Active Substance: MAGNESIUM OXIDE
     Dosage: UNK
     Dates: start: 20131102, end: 20131102
  51. MAGLAX (MAGNESIUM OXIDE) [Concomitant]
     Active Substance: MAGNESIUM OXIDE
     Dosage: UNK
     Dates: start: 20131101, end: 20131101
  52. PURSENNID (SENNOSIDES) [Concomitant]
     Dosage: UNK
     Dates: start: 20130818, end: 20130818
  53. NEUTROGIN [Concomitant]
     Active Substance: LENOGRASTIM
     Dosage: UNK
     Dates: start: 20130827, end: 20130902
  54. NAVELBINE [Suspect]
     Active Substance: VINORELBINE TARTRATE
     Dosage: 18 MG, ONCE
     Route: 042
     Dates: start: 20131030, end: 20131030
  55. DECADRON (DEXAMETHASONE SODIUM PHOSPHATE) [Concomitant]
     Active Substance: DEXAMETHASONE SODIUM PHOSPHATE
     Dosage: UNK
     Dates: start: 20130919, end: 20130920
  56. PRIMPERAN [Concomitant]
     Active Substance: METOCLOPRAMIDE HYDROCHLORIDE
     Dosage: UNK
     Dates: start: 20131129, end: 20131129
  57. MANNITOL. [Concomitant]
     Active Substance: MANNITOL
     Dosage: UNK
     Dates: start: 20131030, end: 20131030
  58. PANTOSIN [Concomitant]
     Active Substance: PANTETHINE
     Dosage: UNK
     Dates: start: 20130814, end: 20130814
  59. PANTOSIN [Concomitant]
     Active Substance: PANTETHINE
     Dosage: UNK
     Dates: start: 20130817, end: 20130817
  60. MAGLAX (MAGNESIUM OXIDE) [Concomitant]
     Active Substance: MAGNESIUM OXIDE
     Dosage: UNK
     Dates: start: 20131129, end: 20131130
  61. MAGLAX (MAGNESIUM OXIDE) [Concomitant]
     Active Substance: MAGNESIUM OXIDE
     Dosage: UNK
     Dates: start: 20130919, end: 20130919
  62. AMOBAN [Concomitant]
     Active Substance: ZOPICLONE
     Dosage: UNK
     Dates: start: 20130918, end: 20130922
  63. DEXALTIN [Concomitant]
     Active Substance: DEXAMETHASONE
  64. NAVELBINE [Suspect]
     Active Substance: VINORELBINE TARTRATE
     Indication: NON-SMALL CELL LUNG CANCER
     Dosage: 29 MG, ONCE
     Route: 042
     Dates: start: 20130814, end: 20130814
  65. CISPLATIN. [Suspect]
     Active Substance: CISPLATIN
     Dosage: 88 MG, ONCE
     Route: 042
     Dates: start: 20130918, end: 20130918
  66. ALOXI [Concomitant]
     Active Substance: PALONOSETRON HYDROCHLORIDE
     Dosage: UNK
     Dates: start: 20130918, end: 20130918
  67. DECADRON (DEXAMETHASONE SODIUM PHOSPHATE) [Concomitant]
     Active Substance: DEXAMETHASONE SODIUM PHOSPHATE
     Dosage: UNK
     Dates: start: 20130918, end: 20130918
  68. PRIMPERAN [Concomitant]
     Active Substance: METOCLOPRAMIDE HYDROCHLORIDE
     Dosage: UNK
     Dates: start: 20130816, end: 20130816
  69. PRIMPERAN [Concomitant]
     Active Substance: METOCLOPRAMIDE HYDROCHLORIDE
     Dosage: UNK
     Dates: start: 20131127, end: 20131127
  70. MAGNESIUM SULFATE [Concomitant]
     Active Substance: MAGNESIUM SULFATE
     Dosage: UNK
     Dates: start: 20130919, end: 20130919
  71. PANTOSIN [Concomitant]
     Active Substance: PANTETHINE
     Dosage: UNK
     Dates: start: 20130818, end: 20130818
  72. PANTOSIN [Concomitant]
     Active Substance: PANTETHINE
     Dosage: UNK
     Dates: start: 20130919, end: 20130919
  73. PANTOSIN [Concomitant]
     Active Substance: PANTETHINE
     Dosage: UNK
     Dates: start: 20131127, end: 20131127
  74. PANTOSIN [Concomitant]
     Active Substance: PANTETHINE
     Dosage: UNK
     Dates: start: 20131103, end: 20131103
  75. PANTOSIN [Concomitant]
     Active Substance: PANTETHINE
     Dosage: UNK
     Dates: start: 20130921, end: 20130921
  76. MAGLAX (MAGNESIUM OXIDE) [Concomitant]
     Active Substance: MAGNESIUM OXIDE
     Dosage: UNK
     Dates: start: 20130814, end: 20130814
  77. MAGLAX (MAGNESIUM OXIDE) [Concomitant]
     Active Substance: MAGNESIUM OXIDE
     Dosage: UNK
     Dates: start: 20131127, end: 20131128
  78. AMOBAN [Concomitant]
     Active Substance: ZOPICLONE
     Dosage: UNK
     Dates: start: 20131031, end: 20131031
  79. POSTERISAN [Concomitant]
     Active Substance: LIDOCAINE
     Dosage: UNK, BID
     Dates: start: 20131031, end: 20131103
  80. FOSAPREPITANT DIMEGLUMINE [Suspect]
     Active Substance: FOSAPREPITANT DIMEGLUMINE
     Dosage: 150 MG, ONCE
     Route: 041
     Dates: start: 20130918, end: 20130918
  81. MAGNESIUM SULFATE [Concomitant]
     Active Substance: MAGNESIUM SULFATE
     Dosage: UNK
     Dates: start: 20131030, end: 20131030
  82. PANTOSIN [Concomitant]
     Active Substance: PANTETHINE
     Dosage: UNK
     Dates: start: 20131129, end: 20131130
  83. PANTOSIN [Concomitant]
     Active Substance: PANTETHINE
     Dosage: UNK
     Dates: start: 20130920, end: 20130920
  84. PANTOSIN [Concomitant]
     Active Substance: PANTETHINE
     Dosage: UNK
     Dates: start: 20131101, end: 20131101
  85. AMOBAN [Concomitant]
     Active Substance: ZOPICLONE
     Dosage: UNK
     Dates: start: 20131126, end: 20131128
  86. NEUTROGIN [Concomitant]
     Active Substance: LENOGRASTIM
     Dosage: UNK
     Dates: start: 20130930, end: 20131004
  87. ROCEPHIN [Concomitant]
     Active Substance: CEFTRIAXONE SODIUM
     Dosage: UNK
     Dates: start: 20131001, end: 20131010
  88. ZITHROMAC [Concomitant]
     Active Substance: AZITHROMYCIN DIHYDRATE
     Dosage: UNK
     Dates: start: 20130930, end: 20131002

REACTIONS (24)
  - Rash [Unknown]
  - Alopecia [Unknown]
  - Bacterial infection [Recovered/Resolved]
  - Diarrhoea [Recovered/Resolved]
  - Musculoskeletal pain [Recovered/Resolved]
  - Neutrophil count decreased [Recovered/Resolved]
  - Stomatitis [Recovered/Resolved]
  - Blood bilirubin increased [Recovered/Resolved]
  - Anaemia [Recovered/Resolved]
  - Pyrexia [Recovered/Resolved]
  - Urticaria [Recovered/Resolved]
  - Oropharyngeal pain [Recovered/Resolved]
  - Radiation oesophagitis [Unknown]
  - Platelet count decreased [Recovered/Resolved]
  - Agranulocytosis [Recovered/Resolved]
  - Decreased appetite [Recovered/Resolved]
  - Face oedema [Recovered/Resolved]
  - Back pain [Recovered/Resolved]
  - Abdominal pain upper [Recovered/Resolved]
  - Cheilitis [Recovered/Resolved]
  - Pigmentation disorder [Unknown]
  - White blood cell count decreased [Recovered/Resolved]
  - Constipation [Recovered/Resolved]
  - Ear pain [Recovered/Resolved]

NARRATIVE: CASE EVENT DATE: 20130814
